FAERS Safety Report 9234647 (Version 1)
Quarter: 2013Q2

REPORT INFORMATION
  Report Type: Spontaneous
  Country: US (occurrence: US)
  Receive Date: 20130416
  Receipt Date: 20130416
  Transmission Date: 20140414
  Serious: No
  Sender: FDA-Public Use
  Company Number: US-PFIZER INC-2013115944

PATIENT
  Age: 55 Year
  Sex: Female
  Weight: 93.4 kg

DRUGS (2)
  1. LEVOXYL [Suspect]
     Indication: THYROID DISORDER
     Dosage: 80 UG, UNK
     Route: 048
     Dates: start: 2010
  2. LEVOXYL [Suspect]
     Dosage: 100 UG, UNK
     Route: 048

REACTIONS (1)
  - Drug level increased [Unknown]
